FAERS Safety Report 4724855-6 (Version None)
Quarter: 2005Q3

REPORT INFORMATION
  Report Type: 
  Country: None (occurrence: None)
  Receive Date: 20050720
  Receipt Date: 20050720
  Transmission Date: 20060218
  Serious: Yes (Hospitalization)
  Sender: FDA-Public Use
  Company Number: None

PATIENT
  Age: 71 Year
  Sex: Male

DRUGS (16)
  1. ENOXAPARIN SODIUM [Suspect]
     Indication: DEEP VEIN THROMBOSIS
     Dosage: 80MG  SC    Q12H
     Route: 058
     Dates: start: 20050401, end: 20050414
  2. SIMVASTATIN [Concomitant]
  3. FOSINOPRIL [Concomitant]
  4. ETODOLAC [Concomitant]
  5. POLYVINYL POVIDONE EYEDROPS [Concomitant]
  6. TIOTROPIUM [Concomitant]
  7. THEOPHYLLINE [Concomitant]
  8. SINGULAIR [Concomitant]
  9. ALBUTEROL [Concomitant]
  10. ADVAIR DISKUS 100/50 [Concomitant]
  11. TERAZOSIN [Concomitant]
  12. HYDROCHLOROTHIAZIDE [Concomitant]
  13. PREDNISONE [Concomitant]
  14. LOVENOX [Concomitant]
  15. GATIFLOXACIN [Concomitant]
  16. DICLOXACILLIN [Concomitant]

REACTIONS (1)
  - HAEMOPTYSIS [None]
